FAERS Safety Report 20175384 (Version 1)
Quarter: 2021Q4

REPORT INFORMATION
  Report Type: Spontaneous
  Country: GB (occurrence: GB)
  Receive Date: 20211213
  Receipt Date: 20211213
  Transmission Date: 20220303
  Serious: Yes (Life-Threatening, Disabling, Other)
  Sender: FDA-Public Use
  Company Number: GB-AMGEN-GBRSP2021194085

PATIENT
  Age: 85 Year
  Sex: Female
  Weight: 69.85 kg

DRUGS (6)
  1. PROLIA [Suspect]
     Active Substance: DENOSUMAB
     Indication: Osteoporosis
     Dosage: 60MG
     Route: 065
     Dates: start: 2014
  2. ADCAL [CALCIUM CARBONATE] [Concomitant]
     Indication: Ill-defined disorder
  3. ATORVASTATIN [Concomitant]
     Active Substance: ATORVASTATIN
     Indication: Ill-defined disorder
  4. ETANERCEPT [Concomitant]
     Active Substance: ETANERCEPT
     Indication: Ill-defined disorder
  5. CLOPIDOGREL [Concomitant]
     Active Substance: CLOPIDOGREL BISULFATE
     Indication: Ill-defined disorder
  6. LEVOTHYROXINE [Concomitant]
     Active Substance: LEVOTHYROXINE
     Indication: Ill-defined disorder

REACTIONS (2)
  - Hypercalcaemia [Unknown]
  - Medication error [Unknown]

NARRATIVE: CASE EVENT DATE: 20180101
